FAERS Safety Report 20221377 (Version 2)
Quarter: 2021Q4

REPORT INFORMATION
  Report Type: Spontaneous
  Country: CN (occurrence: CN)
  Receive Date: 20211223
  Receipt Date: 20211227
  Transmission Date: 20220303
  Serious: Yes (Hospitalization)
  Sender: FDA-Public Use
  Company Number: CN-JNJFOC-20211238883

PATIENT
  Age: 23 Year
  Sex: Male
  Weight: 55 kg

DRUGS (4)
  1. RISPERDAL [Suspect]
     Active Substance: RISPERIDONE
     Indication: Mental disorder
     Route: 048
     Dates: start: 20210929
  2. RISPERDAL [Suspect]
     Active Substance: RISPERIDONE
     Route: 048
     Dates: start: 20211006
  3. VALPROATE MAGNESIUM [Suspect]
     Active Substance: VALPROATE MAGNESIUM
     Indication: Mental disorder
     Route: 048
     Dates: start: 20210929
  4. VALPROATE MAGNESIUM [Suspect]
     Active Substance: VALPROATE MAGNESIUM
     Route: 048
     Dates: start: 20211008

REACTIONS (7)
  - Blood cholinesterase increased [Recovering/Resolving]
  - Stiff tongue [Recovering/Resolving]
  - Hepatic enzyme abnormal [Recovering/Resolving]
  - Dysarthria [Recovering/Resolving]
  - Akathisia [Recovering/Resolving]
  - Blood prolactin increased [Recovering/Resolving]
  - Agitation [Recovering/Resolving]

NARRATIVE: CASE EVENT DATE: 20211106
